FAERS Safety Report 21880897 (Version 1)
Quarter: 2023Q1

REPORT INFORMATION
  Report Type: Spontaneous
  Country: AU (occurrence: AU)
  Receive Date: 20230118
  Receipt Date: 20230118
  Transmission Date: 20230418
  Serious: Yes (Other)
  Sender: FDA-Public Use
  Company Number: AU-BAUSCHBL-2023BNL000299

PATIENT
  Age: 82 Year
  Sex: Female

DRUGS (6)
  1. GENTAMICIN [Suspect]
     Active Substance: GENTAMICIN
     Indication: Product used for unknown indication
     Route: 065
  2. SODIUM CHLORIDE [Suspect]
     Active Substance: SODIUM CHLORIDE
     Indication: Product used for unknown indication
     Route: 065
  3. PENICILLIN G SODIUM [Suspect]
     Active Substance: PENICILLIN G SODIUM
     Indication: Product used for unknown indication
     Route: 065
  4. AMPICILLIN SODIUM [Suspect]
     Active Substance: AMPICILLIN SODIUM
     Indication: Product used for unknown indication
     Route: 065
  5. CEFTRIAXONE [Suspect]
     Active Substance: CEFTRIAXONE
     Indication: Product used for unknown indication
     Route: 065
  6. SODIUM CITRATE [Suspect]
     Active Substance: SODIUM CITRATE
     Indication: Product used for unknown indication
     Route: 065

REACTIONS (4)
  - Acute kidney injury [Unknown]
  - Disease progression [Unknown]
  - Blood creatinine increased [Unknown]
  - Pyrexia [Unknown]
